FAERS Safety Report 7430043-5 (Version None)
Quarter: 2011Q2

REPORT INFORMATION
  Report Type: 
  Country: None (occurrence: None)
  Receive Date: 20110421
  Receipt Date: 20110407
  Transmission Date: 20111010
  Serious: Yes (Hospitalization, Other)
  Sender: FDA-Public Use
  Company Number: US-CELGENEUS-163-21880-10112314

PATIENT
  Sex: Male

DRUGS (19)
  1. CATAPRES [Concomitant]
     Dosage: .2 MILLIGRAM
     Route: 048
  2. NICODERM [Concomitant]
     Dosage: 21 MILLIGRAM
     Route: 062
  3. PROTONIX [Concomitant]
     Dosage: 40 MILLIGRAM
     Route: 048
  4. COLACE [Concomitant]
     Dosage: 100 MILLIGRAM
     Route: 048
  5. MULTI-VITAMINS [Concomitant]
     Dosage: 1 TABLET
     Route: 048
  6. PEPCID [Concomitant]
     Dosage: 20 MILLIGRAM
     Route: 048
  7. REVLIMID [Suspect]
     Indication: MULTIPLE MYELOMA
     Dosage: 25 MILLIGRAM
     Route: 048
     Dates: start: 20101029, end: 20101118
  8. ACETAMINOPHEN [Concomitant]
     Dosage: 650 MILLIGRAM
     Route: 048
  9. AREDIA [Concomitant]
     Route: 065
     Dates: start: 20101119
  10. ATROVENT [Concomitant]
     Dosage: 1
     Route: 045
  11. ALBUTEROL SULFATE [Concomitant]
     Route: 055
  12. AMBIEN [Concomitant]
     Dosage: 5 MILLIGRAM
     Route: 048
  13. MILK OF MAGNESIA TAB [Concomitant]
     Dosage: 30CC
     Route: 048
  14. NORVASC [Concomitant]
     Dosage: 20 MILLIGRAM
     Route: 048
  15. AREDIA [Concomitant]
     Route: 065
     Dates: start: 20101119
  16. DEXAMETHASONE [Concomitant]
     Route: 048
     Dates: start: 20101011
  17. FOLIC ACID [Concomitant]
     Dosage: 1-2 CAPSULES
     Route: 048
  18. THIAMIN HCL [Concomitant]
     Dosage: 100 MILLIGRAM
     Route: 048
  19. FENTANYL [Concomitant]
     Indication: PAIN
     Route: 065
     Dates: start: 20101119

REACTIONS (3)
  - HAEMATOCRIT DECREASED [None]
  - HAEMOGLOBIN DECREASED [None]
  - DRUG ADMINISTRATION ERROR [None]
